FAERS Safety Report 4907142-2 (Version None)
Quarter: 2006Q1

REPORT INFORMATION
  Report Type: 
  Country: None (occurrence: None)
  Receive Date: 20060206
  Receipt Date: 20060123
  Transmission Date: 20060701
  Serious: Yes (Disabling)
  Sender: FDA-Public Use
  Company Number: 2006012339

PATIENT
  Age: 55 Year
  Sex: Female

DRUGS (2)
  1. XALATAN [Suspect]
     Indication: GLAUCOMA
     Dates: start: 20011117
  2. MAGNESIUM SULFATE [Concomitant]

REACTIONS (10)
  - ARRHYTHMIA [None]
  - CONDITION AGGRAVATED [None]
  - DEAFNESS UNILATERAL [None]
  - EAR DISCOMFORT [None]
  - IRIS DISORDER [None]
  - LABYRINTHITIS [None]
  - PAIN [None]
  - PIGMENTATION DISORDER [None]
  - TINNITUS [None]
  - VISUAL DISTURBANCE [None]
